FAERS Safety Report 8796178 (Version 1)
Quarter: 2012Q4

REPORT INFORMATION
  Report Type: Report from Study
  Country: JP (occurrence: JP)
  Receive Date: 20120920
  Receipt Date: 20120920
  Transmission Date: 20130627
  Serious: Yes (Hospitalization)
  Sender: FDA-Public Use
  Company Number: JP-009507513-1209JPN004026

PATIENT
  Age: 55 Year
  Sex: Female
  Weight: 48 kg

DRUGS (19)
  1. PEGINTRON [Suspect]
     Indication: HEPATITIS C
     Dosage: 1.5 Microgram per kilogram, qw
     Route: 058
     Dates: start: 20120224, end: 20120406
  2. PEGINTRON [Suspect]
     Dosage: 1 Microgram per kilogram, qw
     Route: 058
     Dates: start: 20120413, end: 20120511
  3. PEGINTRON [Suspect]
     Dosage: 1.5 Microgram per kilogram, qw
     Route: 058
     Dates: start: 20120518, end: 20120525
  4. PEGINTRON [Suspect]
     Dosage: 1 Microgram per kilogram, qw
     Route: 058
     Dates: start: 20120601, end: 20120601
  5. REBETOL [Suspect]
     Indication: HEPATITIS C
     Dosage: 600 mg, qd CUMULATIVE DOSE OF 2400 MG
     Route: 048
     Dates: start: 20120224, end: 20120329
  6. REBETOL [Suspect]
     Dosage: 400 mg, qd, CUMULATIVE DOSE 2400 MG
     Route: 048
     Dates: start: 20120330, end: 20120524
  7. REBETOL [Suspect]
     Dosage: 600 mg, qd, cumulative dose 2400 mg
     Route: 048
     Dates: start: 20120525, end: 20120604
  8. TELAVIC [Suspect]
     Indication: HEPATITIS C
     Dosage: 1500 mg, qd, cumulative dose of 6000 mg
     Route: 048
     Dates: start: 20120224, end: 20120518
  9. OPALMON [Concomitant]
     Indication: SPINAL COLUMN STENOSIS
     Dosage: 15 Microgram, qd, por
     Route: 048
  10. CALONAL [Concomitant]
     Indication: SPINAL COLUMN STENOSIS
     Dosage: 800 mg, qd, por
     Route: 048
     Dates: start: 20120224
  11. JUZEN-TAIHO-TO [Concomitant]
     Indication: PROPHYLAXIS
     Dosage: 7.5 g, qd, por
     Route: 048
     Dates: start: 20120224, end: 20120604
  12. PREDNISOLONE [Concomitant]
     Indication: PROPHYLAXIS
     Dosage: 5 mg, qd, por
     Route: 048
     Dates: end: 20120524
  13. TALION (BEPOTASTINE BESYLATE) [Concomitant]
     Indication: PROPHYLAXIS
     Dosage: 20 mg, qd
     Route: 048
     Dates: end: 20120524
  14. LENDORMIN D [Concomitant]
     Indication: PROPHYLAXIS
     Dosage: 0.25 mg, qd, por
     Route: 048
  15. THYROID [Concomitant]
     Indication: AUTOIMMUNE THYROIDITIS
     Dosage: 75 Microgram, qd, por
     Route: 048
  16. PARATHYROID HORMONE [Concomitant]
     Indication: AUTOIMMUNE THYROIDITIS
     Dosage: 75 Microgram, qd, por
     Route: 048
  17. PRIMPERAN [Concomitant]
     Dosage: 15 mg, qd
     Route: 048
     Dates: start: 20120227, end: 20120311
  18. ZYLORIC [Concomitant]
     Dosage: 200 mg, qd
     Route: 048
     Dates: start: 20120323, end: 20120517
  19. MYSLEE [Concomitant]
     Indication: INSOMNIA
     Dosage: 5 mg, qd
     Route: 048
     Dates: start: 20120420, end: 20120426

REACTIONS (1)
  - Psychotic disorder [Unknown]
